FAERS Safety Report 23362985 (Version 1)
Quarter: 2024Q1

REPORT INFORMATION
  Report Type: Other
  Country: CA (occurrence: None)
  Receive Date: 20240103
  Receipt Date: 20240103
  Transmission Date: 20240409
  Serious: Yes (Other)
  Sender: FDA-Public Use
  Company Number: CA-ROCHE-3380648

PATIENT
  Sex: Male

DRUGS (1)
  1. OCREVUS [Suspect]
     Active Substance: OCRELIZUMAB
     Indication: Relapsing-remitting multiple sclerosis
     Dosage: 300 MG AT DAY 0 AND 14, THEN 600 MG EVERY 6 MONTH
     Route: 042
     Dates: start: 20220707

REACTIONS (6)
  - Fatigue [Unknown]
  - Vasculitis [Not Recovered/Not Resolved]
  - Magnetic resonance imaging abnormal [Unknown]
  - Demyelination [Unknown]
  - Metabolic disorder [Unknown]
  - Malnutrition [Not Recovered/Not Resolved]
